FAERS Safety Report 16779190 (Version 1)
Quarter: 2019Q3

REPORT INFORMATION
  Report Type: Spontaneous
  Country: GB (occurrence: GB)
  Receive Date: 20190906
  Receipt Date: 20190906
  Transmission Date: 20191005
  Serious: Yes (Other)
  Sender: FDA-Public Use
  Company Number: GB-TEVA-2019-GB-1102795

PATIENT
  Age: 43 Year
  Sex: Male
  Weight: 93 kg

DRUGS (11)
  1. ATORVASTATIN [Concomitant]
     Active Substance: ATORVASTATIN
     Dosage: NIGHT, 1 DOSAGE FORMS PER DAY
     Dates: start: 20190219
  2. CLARITHROMYCIN. [Suspect]
     Active Substance: CLARITHROMYCIN
     Dosage: 500 MG PER 12 HOURS
     Dates: start: 20190730, end: 20190806
  3. WARFARIN SODIUM. [Concomitant]
     Active Substance: WARFARIN SODIUM
     Dosage: TAKE AS PRESCRIBED IN ANTICOAGULANT TREATMENT BOOK
     Dates: start: 20181214
  4. BISOPROLOL [Concomitant]
     Active Substance: BISOPROLOL
     Dosage: 1 DOSAGE FORMS PER DAY
     Dates: start: 20190219
  5. TRAMADOL. [Concomitant]
     Active Substance: TRAMADOL
     Dosage: ONE OR TWO TO BE TAKEN EVERY FOUR HOURS
     Dates: start: 20190219
  6. RAMIPRIL. [Concomitant]
     Active Substance: RAMIPRIL
     Dosage: NIGHT, 1 DOSAGE FORMS PER DAY
     Dates: start: 20190219
  7. ACETYLSALICYLIC ACID [Concomitant]
     Active Substance: ASPIRIN
     Dosage: 1 DOSAGE FORMS PER DAY
     Dates: start: 20190219
  8. FLUCLOXACILLIN [Concomitant]
     Active Substance: FLUCLOXACILLIN
     Dosage: 4 DOSAGE FORMS PER DAY
     Dates: start: 20190724, end: 20190731
  9. CLOPIDOGREL [Concomitant]
     Active Substance: CLOPIDOGREL BISULFATE
     Dosage: AS DIRECTED,1 DOSAGE FORMS PER DAY
     Dates: start: 20190219
  10. AMITRIPTYLINE HYDROCHLORIDE. [Concomitant]
     Active Substance: AMITRIPTYLINE HYDROCHLORIDE
     Dosage: NIGHT, 1 DOSAGE FORMS PER DAY
     Dates: start: 20190730
  11. GLYCERYL TRINITRATE [Concomitant]
     Active Substance: NITROGLYCERIN
     Dosage: AS DIRECTED
     Dates: start: 20190219

REACTIONS (1)
  - Vision blurred [Recovering/Resolving]

NARRATIVE: CASE EVENT DATE: 20190804
